FAERS Safety Report 7138161-6 (Version None)
Quarter: 2010Q4

REPORT INFORMATION
  Report Type: 
  Country: None (occurrence: None)
  Receive Date: 20101206
  Receipt Date: 20101125
  Transmission Date: 20110411
  Serious: Yes (Hospitalization)
  Sender: FDA-Public Use
  Company Number: FR-ASTRAZENECA-2010SE56347

PATIENT
  Age: 65 Year
  Sex: Male

DRUGS (6)
  1. ATENOLOL [Suspect]
     Route: 048
  2. NEXIUM [Suspect]
     Indication: HIATUS HERNIA
     Route: 048
     Dates: end: 20101108
  3. FLECAINIDE ACETATE [Suspect]
     Route: 048
  4. DEPAKENE [Suspect]
     Indication: CONVULSION PROPHYLAXIS
     Route: 048
     Dates: end: 20101101
  5. LEXOMIL [Suspect]
     Indication: ANXIETY
     Route: 048
     Dates: end: 20101101
  6. LEXOMIL [Suspect]
     Indication: INSOMNIA
     Route: 048
     Dates: end: 20101101

REACTIONS (3)
  - CHOLESTASIS [None]
  - GENERAL PHYSICAL HEALTH DETERIORATION [None]
  - LIVER INJURY [None]
